FAERS Safety Report 5089002-2 (Version None)
Quarter: 2006Q3

REPORT INFORMATION
  Report Type: 
  Country: None (occurrence: None)
  Receive Date: 20060825
  Receipt Date: 20060816
  Transmission Date: 20061208
  Serious: Yes (Hospitalization, Other)
  Sender: FDA-Public Use
  Company Number: PHEH2006US10512

PATIENT
  Age: 65 Year
  Sex: Female

DRUGS (3)
  1. ZOMETA [Suspect]
     Indication: MULTIPLE MYELOMA
     Dates: start: 20040101, end: 20060101
  2. LOPRESSOR [Concomitant]
  3. CELEXA [Concomitant]

REACTIONS (9)
  - BREATH ODOUR [None]
  - CARDIAC MURMUR [None]
  - CARDIAC OPERATION [None]
  - MITRAL VALVE REPLACEMENT [None]
  - ORAL SOFT TISSUE DISORDER [None]
  - OSTEONECROSIS [None]
  - PAIN [None]
  - PRIMARY SEQUESTRUM [None]
  - TOOTH EXTRACTION [None]
